FAERS Safety Report 13895196 (Version 2)
Quarter: 2017Q3

REPORT INFORMATION
  Report Type: Spontaneous
  Country: CN (occurrence: CN)
  Receive Date: 20170823
  Receipt Date: 20170907
  Transmission Date: 20171127
  Serious: Yes (Other)
  Sender: FDA-Public Use
  Company Number: CN-CIPLA LTD.-2017CN14593

PATIENT

DRUGS (3)
  1. DOCETAXEL. [Suspect]
     Active Substance: DOCETAXEL
     Indication: ALVEOLAR SOFT PART SARCOMA METASTATIC
     Dosage: 100 MG/M2, CYCLICAL, ADMINISTERED INTRAVENOUSLY FOR 60 MIN EVERY 21 D FROM D 8
     Route: 042
     Dates: start: 2015
  2. GEMCITABINE [Suspect]
     Active Substance: GEMCITABINE\GEMCITABINE HYDROCHLORIDE
     Indication: ALVEOLAR SOFT PART SARCOMA METASTATIC
     Dosage: 900 MG/M2, CYCLICAL, AT A FIXED DOSE RATE OF 900 MG/M2 BY INTRAVENOUS INFUSION FOR 90 MIN ON D 1, 8
     Dates: start: 2015
  3. APATINIB [Suspect]
     Active Substance: APATINIB
     Indication: ALVEOLAR SOFT PART SARCOMA METASTATIC
     Dosage: 500 MG/DAY
     Route: 048
     Dates: start: 201506, end: 201603

REACTIONS (6)
  - Rash [Unknown]
  - Drug resistance [Unknown]
  - Disease progression [Unknown]
  - Alanine aminotransferase increased [Unknown]
  - Palmar-plantar erythrodysaesthesia syndrome [Unknown]
  - Aspartate aminotransferase increased [Unknown]

NARRATIVE: CASE EVENT DATE: 2015
